FAERS Safety Report 6301521-7 (Version None)
Quarter: 2009Q3

REPORT INFORMATION
  Report Type: 
  Country: None (occurrence: None)
  Receive Date: 20090807
  Receipt Date: 20090715
  Transmission Date: 20100115
  Serious: Yes (Hospitalization)
  Sender: FDA-Public Use
  Company Number: B0587414A

PATIENT
  Sex: Male

DRUGS (4)
  1. KREDEX [Suspect]
     Indication: DRUG USE FOR UNKNOWN INDICATION
     Dosage: 12.5UNIT IN THE MORNING
     Dates: start: 20090305
  2. TAREG [Concomitant]
  3. KARDEGIC [Concomitant]
  4. URINARY CATHETERISATION [Concomitant]

REACTIONS (7)
  - AMNESIA [None]
  - ARTHRALGIA [None]
  - DIARRHOEA [None]
  - DIZZINESS [None]
  - FATIGUE [None]
  - GAIT DISTURBANCE [None]
  - WEIGHT DECREASED [None]
